FAERS Safety Report 6333429-5 (Version None)
Quarter: 2009Q3

REPORT INFORMATION
  Report Type: 
  Country: None (occurrence: None)
  Receive Date: 20090828
  Receipt Date: 20090817
  Transmission Date: 20100115
  Serious: Yes (Hospitalization)
  Sender: FDA-Public Use
  Company Number: JP-ELI_LILLY_AND_COMPANY-JP200908003339

PATIENT
  Age: 25 Year
  Sex: Male

DRUGS (3)
  1. STRATTERA [Suspect]
     Indication: ATTENTION DEFICIT/HYPERACTIVITY DISORDER
     Dosage: 50 MG, DAILY (1/D)
     Route: 048
     Dates: start: 20090701
  2. CARBAMAZEPINE [Concomitant]
     Route: 048
  3. HIRNAMIN [Concomitant]
     Route: 048

REACTIONS (2)
  - FRACTURE [None]
  - OFF LABEL USE [None]
